FAERS Safety Report 6696871-9 (Version None)
Quarter: 2010Q2

REPORT INFORMATION
  Report Type: 
  Country: None (occurrence: None)
  Receive Date: 20100420
  Receipt Date: 20090403
  Transmission Date: 20101027
  Serious: Yes (Hospitalization)
  Sender: FDA-Public Use
  Company Number: SPV1-2009-00588

PATIENT
  Sex: Male

DRUGS (2)
  1. LIALDA [Suspect]
     Indication: COLITIS ULCERATIVE
     Dosage: G, ORAL, G
     Route: 048
     Dates: start: 20080501, end: 20090301
  2. LIALDA [Suspect]
     Indication: COLITIS ULCERATIVE
     Dosage: G, ORAL, G
     Route: 048
     Dates: start: 20090301, end: 20090301

REACTIONS (1)
  - PANCREATITIS [None]
